FAERS Safety Report 19429195 (Version 1)
Quarter: 2021Q2

REPORT INFORMATION
  Report Type: Spontaneous
  Country: US (occurrence: US)
  Receive Date: 20210617
  Receipt Date: 20210617
  Transmission Date: 20210717
  Serious: No
  Sender: FDA-Public Use
  Company Number: None

PATIENT
  Age: 76 Year
  Sex: Female
  Weight: 73 kg

DRUGS (1)
  1. DETECTNET [Suspect]
     Active Substance: COPPER OXODOTREOTIDE CU-64

REACTIONS (6)
  - Pain in jaw [None]
  - Hypertension [None]
  - Chest discomfort [None]
  - Dyspnoea [None]
  - Musculoskeletal chest pain [None]
  - Heart rate decreased [None]

NARRATIVE: CASE EVENT DATE: 20210527
